FAERS Safety Report 5873942-8 (Version None)
Quarter: 2008Q3

REPORT INFORMATION
  Report Type: 
  Country: None (occurrence: None)
  Receive Date: 20080905
  Receipt Date: 20080905
  Transmission Date: 20090109
  Serious: Yes (Other)
  Sender: FDA-Public Use
  Company Number: None

PATIENT
  Age: 67 Year
  Sex: Female
  Weight: 74.8435 kg

DRUGS (1)
  1. EVISTA [Suspect]
     Indication: OSTEOPENIA

REACTIONS (6)
  - ABDOMINAL PAIN UPPER [None]
  - ANAEMIA [None]
  - CROHN'S DISEASE [None]
  - DIARRHOEA [None]
  - FATIGUE [None]
  - GASTROINTESTINAL INFLAMMATION [None]
